FAERS Safety Report 15986739 (Version 1)
Quarter: 2019Q1

REPORT INFORMATION
  Report Type: Spontaneous
  Country: US (occurrence: US)
  Receive Date: 20190220
  Receipt Date: 20190220
  Transmission Date: 20190418
  Serious: Yes (Other)
  Sender: FDA-Public Use
  Company Number: US-UCBSA-2019007177

PATIENT
  Age: 54 Year
  Sex: Female

DRUGS (1)
  1. LEVETIRACETAM. [Suspect]
     Active Substance: LEVETIRACETAM
     Indication: EPILEPSY
     Dosage: UNK

REACTIONS (5)
  - Drug ineffective [Unknown]
  - Bipolar disorder [Unknown]
  - Anxiety [Unknown]
  - Mental disorder [Unknown]
  - Seizure [Unknown]
